FAERS Safety Report 21974469 (Version 1)
Quarter: 2023Q1

REPORT INFORMATION
  Report Type: Spontaneous
  Country: US (occurrence: US)
  Receive Date: 20230209
  Receipt Date: 20230209
  Transmission Date: 20230417
  Serious: No
  Sender: FDA-Public Use
  Company Number: US-MYLANLABS-2022M1025505

PATIENT
  Age: 61 Year
  Sex: Male
  Weight: 122.5 kg

DRUGS (3)
  1. SEMGLEE (INSULIN GLARGINE-YFGN) [Suspect]
     Active Substance: INSULIN GLARGINE-YFGN
     Dosage: UNK (APPLIED TWICE A DAY TOTAL OF 80 UNITS)
     Route: 058
  2. SEMGLEE (INSULIN GLARGINE-YFGN) [Suspect]
     Active Substance: INSULIN GLARGINE-YFGN
     Dosage: 80 INTERNATIONAL UNIT, QD (40 UNITS IN THE MORNING AND 40 UNITS AT NIGHT )
     Route: 058
  3. SEMGLEE (INSULIN GLARGINE-YFGN) [Suspect]
     Active Substance: INSULIN GLARGINE-YFGN
     Dosage: 80 INTERNATIONAL UNIT, QD (40 UNITS IN THE MORNING AND 40 UNITS AT NIGHT )
     Route: 058

REACTIONS (5)
  - Weight decreased [Unknown]
  - Device issue [Unknown]
  - Product preparation error [Unknown]
  - Product storage error [Unknown]
  - Inappropriate schedule of product administration [Unknown]

NARRATIVE: CASE EVENT DATE: 20220301
